FAERS Safety Report 12136212 (Version 2)
Quarter: 2016Q1

REPORT INFORMATION
  Report Type: Report from Study
  Country: US (occurrence: US)
  Receive Date: 20160302
  Receipt Date: 20160310
  Transmission Date: 20160526
  Serious: No
  Sender: FDA-Public Use
  Company Number: US-AMGEN-USASL2016022765

PATIENT
  Age: 71 Year
  Sex: Female

DRUGS (1)
  1. ENBREL [Suspect]
     Active Substance: ETANERCEPT
     Indication: RHEUMATOID ARTHRITIS
     Dosage: 50 MG, WEEKLY
     Route: 065
     Dates: start: 20160218

REACTIONS (7)
  - Rhinorrhoea [Unknown]
  - Rash papular [Unknown]
  - Headache [Unknown]
  - Sneezing [Unknown]
  - Muscle spasms [Unknown]
  - Lacrimation increased [Unknown]
  - Neck pain [Unknown]

NARRATIVE: CASE EVENT DATE: 20160219
